FAERS Safety Report 11377720 (Version 1)
Quarter: 2015Q3

REPORT INFORMATION
  Report Type: Spontaneous
  Country: US (occurrence: US)
  Receive Date: 20150811
  Receipt Date: 20150811
  Transmission Date: 20151125
  Serious: No
  Sender: FDA-Public Use
  Company Number: US-ELI_LILLY_AND_COMPANY-US200906000345

PATIENT
  Age: 57 Year
  Sex: Male

DRUGS (18)
  1. AMITRIPTYLINE [Concomitant]
     Active Substance: AMITRIPTYLINE
  2. TESTOSTERONE. [Concomitant]
     Active Substance: TESTOSTERONE
  3. HUMULIN R [Suspect]
     Active Substance: INSULIN HUMAN
  4. REGLAN [Concomitant]
     Active Substance: METOCLOPRAMIDE HYDROCHLORIDE
  5. GABAPENTIN. [Concomitant]
     Active Substance: GABAPENTIN
  6. TOPAMAX [Concomitant]
     Active Substance: TOPIRAMATE
  7. SANDOSTATIN LAR DEPOT [Concomitant]
     Active Substance: OCTREOTIDE ACETATE
  8. HUMULIN 70/30 [Suspect]
     Active Substance: INSULIN HUMAN
  9. KEPPRA [Concomitant]
     Active Substance: LEVETIRACETAM
  10. TRAMADOL. [Concomitant]
     Active Substance: TRAMADOL
  11. ASPIRIN. [Concomitant]
     Active Substance: ASPIRIN
  12. LASIX [Concomitant]
     Active Substance: FUROSEMIDE
  13. NITROGLYCERINE [Concomitant]
     Active Substance: NITROGLYCERIN
  14. METFORMIN [Concomitant]
     Active Substance: METFORMIN HYDROCHLORIDE
  15. ACTOS [Concomitant]
     Active Substance: PIOGLITAZONE HYDROCHLORIDE
  16. LEVOTHYROXINE. [Concomitant]
     Active Substance: LEVOTHYROXINE
  17. POTASSIUM [Concomitant]
     Active Substance: POTASSIUM
  18. LOPID [Concomitant]
     Active Substance: GEMFIBROZIL

REACTIONS (3)
  - Blood glucose decreased [Not Recovered/Not Resolved]
  - Intentional product misuse [Recovered/Resolved]
  - Blood glucose increased [Recovered/Resolved]

NARRATIVE: CASE EVENT DATE: 200905
